FAERS Safety Report 21695744 (Version 1)
Quarter: 2022Q4

REPORT INFORMATION
  Report Type: Spontaneous
  Country: US (occurrence: US)
  Receive Date: 20221207
  Receipt Date: 20221207
  Transmission Date: 20230113
  Serious: Yes (Hospitalization)
  Sender: FDA-Public Use
  Company Number: US-PROCTER+GAMBLE-PH22009275

PATIENT

DRUGS (2)
  1. DIPHENHYDRAMINE HYDROCHLORIDE [Suspect]
     Active Substance: DIPHENHYDRAMINE HYDROCHLORIDE
     Indication: Alcohol use disorder
     Dosage: 50 MILLIGRAM; STUDY MEDICATION WAS TAKEN ORALLY IN A SINGLE OPAQUE CAPSULE OF UNVARYING APPEARANCE A
     Route: 048
  2. DIPHENHYDRAMINE HYDROCHLORIDE [Suspect]
     Active Substance: DIPHENHYDRAMINE HYDROCHLORIDE
     Dosage: 100 MILLIGRAM; STUDY MEDICATION WAS TAKEN ORALLY IN A SINGLE OPAQUE CAPSULE OF UNVARYING APPEARANCE
     Route: 048

REACTIONS (2)
  - Mallory-Weiss syndrome [Unknown]
  - Vomiting [Unknown]
